FAERS Safety Report 4358341-2 (Version None)
Quarter: 2004Q2

REPORT INFORMATION
  Report Type: 
  Country: None (occurrence: None)
  Receive Date: 20040514
  Receipt Date: 20040122
  Transmission Date: 20050107
  Serious: Yes (Hospitalization, Other)
  Sender: FDA-Public Use
  Company Number: PHNU2004DE00651

PATIENT
  Age: 90 Year
  Sex: Female

DRUGS (5)
  1. CALCITONIN SALMON [Suspect]
     Indication: OSTEOPOROSIS
     Route: 030
     Dates: start: 19850327, end: 19850801
  2. CALCITONIN SALMON [Suspect]
     Route: 030
     Dates: start: 19870101, end: 19870101
  3. CALCITONIN SALMON [Suspect]
     Dosage: 1 OR 2 WEEKS ONCE OR TWICE/YEAR
     Route: 030
  4. CALCITONIN SALMON [Suspect]
     Dosage: 100 IU, QD
     Route: 058
     Dates: start: 20040101, end: 20040121
  5. CALCITONIN SALMON [Suspect]
     Dosage: 100 IU, QOD
     Route: 058
     Dates: start: 20040122, end: 20040101

REACTIONS (4)
  - HUMERUS FRACTURE [None]
  - HYPERSENSITIVITY [None]
  - PLANTAR ERYTHEMA [None]
  - SPINAL FRACTURE [None]
